FAERS Safety Report 17318448 (Version 4)
Quarter: 2020Q2

REPORT INFORMATION
  Report Type: Report from Study
  Country: CA (occurrence: CA)
  Receive Date: 20200124
  Receipt Date: 20200417
  Transmission Date: 20200713
  Serious: Yes (Hospitalization)
  Sender: FDA-Public Use
  Company Number: CA-VERTEX PHARMACEUTICALS-2020-001097

PATIENT
  Age: 2 Year
  Sex: Female
  Weight: 11 kg

DRUGS (9)
  1. VX-809/VX-770 COMBINATION [Suspect]
     Active Substance: IVACAFTOR\LUMACAFTOR
     Indication: CYSTIC FIBROSIS
     Dosage: UNK, BID
     Route: 048
     Dates: start: 20191206
  2. SODIUM CHLORIDE. [Concomitant]
     Active Substance: SODIUM CHLORIDE
     Indication: CYSTIC FIBROSIS LUNG
     Dosage: UNK
     Route: 048
     Dates: start: 201801
  3. RESTORALAX [Concomitant]
     Active Substance: POLYETHYLENE GLYCOL 3350
     Dosage: INCREASED TO 8.5 G
     Route: 048
  4. VITAMIN D [COLECALCIFEROL] [Concomitant]
     Active Substance: CHOLECALCIFEROL
     Dosage: UNK
     Route: 048
     Dates: start: 201904, end: 20200116
  5. RESTORALAX [Concomitant]
     Active Substance: POLYETHYLENE GLYCOL 3350
     Dosage: UNK
     Route: 048
     Dates: start: 201910
  6. CEFTIN [Concomitant]
     Active Substance: CEFUROXIME AXETIL
     Indication: NASOPHARYNGITIS
     Dosage: 165 MG, BID
     Route: 048
     Dates: start: 20191217, end: 20191231
  7. CREON [Concomitant]
     Active Substance: PANCRELIPASE AMYLASE\PANCRELIPASE LIPASE\PANCRELIPASE PROTEASE
     Indication: PANCREATIC FAILURE
     Dosage: UNK
     Route: 048
     Dates: start: 20191218
  8. HYDRASENSE [SEA WATER] [Concomitant]
     Indication: CYSTIC FIBROSIS LUNG
     Dosage: UNK
     Route: 055
     Dates: start: 2018
  9. CEFTIN [Concomitant]
     Active Substance: CEFUROXIME AXETIL
     Indication: HAEMOPHILUS INFECTION
     Dosage: UNK
     Route: 048
     Dates: start: 20200119, end: 20200202

REACTIONS (1)
  - Distal intestinal obstruction syndrome [Recovered/Resolved]

NARRATIVE: CASE EVENT DATE: 20200116
